APPROVED DRUG PRODUCT: PHYLLOCONTIN
Active Ingredient: AMINOPHYLLINE
Strength: 225MG
Dosage Form/Route: TABLET, EXTENDED RELEASE;ORAL
Application: A086760 | Product #001
Applicant: PHARMACEUTICAL RESEARCH ASSOC INC
Approved: Approved Prior to Jan 1, 1982 | RLD: No | RS: No | Type: DISCN